FAERS Safety Report 6187145-3 (Version None)
Quarter: 2009Q2

REPORT INFORMATION
  Report Type: 
  Country: None (occurrence: None)
  Receive Date: 20090512
  Receipt Date: 20090504
  Transmission Date: 20091009
  Serious: Yes (Other)
  Sender: FDA-Public Use
  Company Number: US-BAYER-200919152NA

PATIENT
  Sex: Male

DRUGS (1)
  1. CAMPATH [Suspect]
     Indication: DRUG USE FOR UNKNOWN INDICATION
     Dates: end: 20080101

REACTIONS (1)
  - THROMBOCYTOPENIA [None]
